FAERS Safety Report 12696867 (Version 1)
Quarter: 2016Q3

REPORT INFORMATION
  Report Type: Spontaneous
  Country: US (occurrence: None)
  Receive Date: 20160829
  Receipt Date: 20160829
  Transmission Date: 20161109
  Serious: No
  Sender: FDA-Public Use
  Company Number: None

PATIENT
  Age: 5 Year
  Sex: Male
  Weight: 19.05 kg

DRUGS (1)
  1. MONTELUKAST [Suspect]
     Active Substance: MONTELUKAST SODIUM
     Indication: ASTHMA
     Route: 048
     Dates: start: 20160822, end: 20160826

REACTIONS (6)
  - Abnormal behaviour [None]
  - Depressed mood [None]
  - Inappropriate affect [None]
  - Screaming [None]
  - Restlessness [None]
  - Aggression [None]

NARRATIVE: CASE EVENT DATE: 20160826
